FAERS Safety Report 6000019-3 (Version None)
Quarter: 2008Q4

REPORT INFORMATION
  Report Type: 
  Country: None (occurrence: None)
  Receive Date: 20081215
  Receipt Date: 20081209
  Transmission Date: 20090506
  Serious: Yes (Death, Life-Threatening, Hospitalization)
  Sender: FDA-Public Use
  Company Number: A0717632A

PATIENT
  Age: 59 Year
  Sex: Male
  Weight: 94 kg

DRUGS (3)
  1. LAPATINIB [Suspect]
     Dosage: 1500MG PER DAY
     Route: 048
     Dates: start: 20080310
  2. RADIOTHERAPY [Suspect]
     Route: 061
     Dates: start: 20080317
  3. CISPLATIN [Suspect]
     Dosage: 241.7MGM2 CYCLIC
     Route: 042
     Dates: start: 20080317

REACTIONS (3)
  - FEBRILE NEUTROPENIA [None]
  - PNEUMONIA [None]
  - SEPSIS [None]
